FAERS Safety Report 6893954-5 (Version None)
Quarter: 2010Q3

REPORT INFORMATION
  Report Type: 
  Country: None (occurrence: None)
  Receive Date: 20100802
  Receipt Date: 20100721
  Transmission Date: 20110219
  Serious: No
  Sender: FDA-Public Use
  Company Number: US-BIOGENIDEC-2010BI025027

PATIENT
  Age: 40 Year
  Sex: Female

DRUGS (2)
  1. AVONEX [Suspect]
     Indication: MULTIPLE SCLEROSIS
     Route: 030
     Dates: start: 20091207, end: 20100412
  2. AVONEX [Suspect]
     Route: 030
     Dates: start: 20100601

REACTIONS (6)
  - CHEST PAIN [None]
  - CHILLS [None]
  - DYSPNOEA [None]
  - HEADACHE [None]
  - PAIN [None]
  - TREMOR [None]
